FAERS Safety Report 12419028 (Version 3)
Quarter: 2016Q3

REPORT INFORMATION
  Report Type: Report from Study
  Country: ID (occurrence: ID)
  Receive Date: 20160531
  Receipt Date: 20160701
  Transmission Date: 20161109
  Serious: Yes (Death, Hospitalization, Other)
  Sender: FDA-Public Use
  Company Number: ID-ROCHE-1751501

PATIENT
  Age: 72 Year
  Sex: Female

DRUGS (2)
  1. MABTHERA [Suspect]
     Active Substance: RITUXIMAB
     Indication: PRODUCT USED FOR UNKNOWN INDICATION
     Route: 065
  2. VINCRISTINE [Concomitant]
     Active Substance: VINCRISTINE

REACTIONS (8)
  - Thrombocytopenia [Unknown]
  - General physical health deterioration [Fatal]
  - Blood electrolytes decreased [Unknown]
  - Blood pressure decreased [Unknown]
  - Lung infection [Unknown]
  - Leukopenia [Unknown]
  - Hypotension [Unknown]
  - Disorientation [Not Recovered/Not Resolved]
